FAERS Safety Report 8269412-2 (Version None)
Quarter: 2012Q2

REPORT INFORMATION
  Report Type: 
  Country: None (occurrence: None)
  Receive Date: 20120409
  Receipt Date: 20120208
  Transmission Date: 20120825
  Serious: No
  Sender: FDA-Public Use
  Company Number: US-ASTRAZENECA-2012SE08914

PATIENT
  Sex: Male

DRUGS (3)
  1. EFFIENT [Concomitant]
  2. PLAVIX [Concomitant]
  3. BRILINTA [Suspect]
     Route: 048

REACTIONS (2)
  - RASH [None]
  - BLOOD PRESSURE FLUCTUATION [None]
